FAERS Safety Report 21402253 (Version 3)
Quarter: 2022Q4

REPORT INFORMATION
  Report Type: Report from Study
  Country: BR (occurrence: BR)
  Receive Date: 20221003
  Receipt Date: 20221223
  Transmission Date: 20230112
  Serious: Yes (Hospitalization, Other)
  Sender: FDA-Public Use
  Company Number: BR-TAKEDA-2022TUS069117

PATIENT
  Age: 33 Year
  Sex: Male
  Weight: 56 kg

DRUGS (7)
  1. VEDOLIZUMAB [Suspect]
     Active Substance: VEDOLIZUMAB
     Indication: Crohn^s disease
     Dosage: 300 MILLIGRAM
     Route: 042
     Dates: start: 20220822
  2. VEDOLIZUMAB [Suspect]
     Active Substance: VEDOLIZUMAB
     Indication: Colitis ulcerative
  3. MESALAMINE [Suspect]
     Active Substance: MESALAMINE
     Indication: Crohn^s disease
     Dosage: 800 MILLIGRAM, TID
     Route: 065
  4. MESALAMINE [Suspect]
     Active Substance: MESALAMINE
     Indication: Crohn^s disease
     Dosage: UNK UNK, BID
     Route: 065
  5. RIVOTRIL [Concomitant]
     Active Substance: CLONAZEPAM
     Dosage: 0.25 MILLIGRAM, BID
  6. AZATHIOPRINE [Concomitant]
     Active Substance: AZATHIOPRINE
     Indication: Crohn^s disease
     Dosage: 50 MILLIGRAM, BID
  7. ACETAMINOPHEN [Concomitant]
     Active Substance: ACETAMINOPHEN
     Indication: Proctalgia
     Dosage: 700 MILLIGRAM

REACTIONS (16)
  - Inflammatory bowel disease [Not Recovered/Not Resolved]
  - Vein rupture [Unknown]
  - Weight fluctuation [Unknown]
  - Asthenia [Unknown]
  - Emotional distress [Unknown]
  - Anaemia [Unknown]
  - Poor venous access [Unknown]
  - Diarrhoea [Not Recovered/Not Resolved]
  - Pain [Not Recovered/Not Resolved]
  - Oral contusion [Unknown]
  - Proctalgia [Unknown]
  - Anorectal discomfort [Unknown]
  - Infection [Unknown]
  - Oropharyngeal pain [Unknown]
  - Pyrexia [Not Recovered/Not Resolved]
  - Gastrointestinal infection [Unknown]

NARRATIVE: CASE EVENT DATE: 20220907
